FAERS Safety Report 4882780-4 (Version None)
Quarter: 2005Q4

REPORT INFORMATION
  Report Type: 
  Country: None (occurrence: None)
  Receive Date: 20051201
  Receipt Date: 20050916
  Transmission Date: 20060501
  Serious: No
  Sender: FDA-Public Use
  Company Number: 2005PV002202

PATIENT
  Age: 61 Year
  Sex: Female
  Weight: 121.564 kg

DRUGS (17)
  1. BYETTA [Suspect]
     Indication: DIABETES MELLITUS NON-INSULIN-DEPENDENT
     Dosage: 5 MCG; BID; SC
     Route: 058
     Dates: start: 20050914
  2. PRECOSE [Concomitant]
  3. LANTUS [Concomitant]
  4. DITROPAN [Concomitant]
  5. SPIRONOLACTONE [Concomitant]
  6. ACTOS [Concomitant]
  7. AMARYL [Concomitant]
  8. ZYRTEC [Concomitant]
  9. DIOVAN [Concomitant]
  10. LISINOPRIL [Concomitant]
  11. NEXIUM [Concomitant]
  12. ADVAIR DISKUS 100/50 [Concomitant]
  13. COMBIVENT [Concomitant]
  14. MIRAPEX [Concomitant]
  15. VITAMINS [Concomitant]
  16. AMARYL [Concomitant]
  17. ACTOS [Concomitant]

REACTIONS (5)
  - BLOOD GLUCOSE FLUCTUATION [None]
  - DECREASED APPETITE [None]
  - DYSPNOEA [None]
  - EARLY SATIETY [None]
  - FEELING JITTERY [None]
